FAERS Safety Report 9381741 (Version 1)
Quarter: 2013Q3

REPORT INFORMATION
  Report Type: Spontaneous
  Country: US (occurrence: US)
  Receive Date: 20130703
  Receipt Date: 20130703
  Transmission Date: 20140515
  Serious: Yes (Hospitalization)
  Sender: FDA-Public Use
  Company Number: US-ASTELLAS-2013US006865

PATIENT
  Age: 9 Year
  Sex: Male

DRUGS (2)
  1. PROGRAF [Suspect]
     Indication: INTESTINAL TRANSPLANT
     Dosage: 0.5 MG, UID/QD
     Route: 048
     Dates: start: 20100922
  2. PROGRAF [Suspect]
     Dosage: 1 MG, BID
     Route: 048
     Dates: start: 20100922

REACTIONS (2)
  - Off label use [Unknown]
  - Hospitalisation [Unknown]
